FAERS Safety Report 7759211-X (Version None)
Quarter: 2011Q3

REPORT INFORMATION
  Report Type: 
  Country: None (occurrence: None)
  Receive Date: 20110915
  Receipt Date: 20110901
  Transmission Date: 20111222
  Serious: Yes (Life-Threatening, Hospitalization, Disabling, Other)
  Sender: FDA-Public Use
  Company Number: 00000409

PATIENT
  Sex: Male
  Weight: 104.3273 kg

DRUGS (2)
  1. CITALOPRAM [Concomitant]
  2. CITALOPRAM HYDROBROMIDE [Suspect]
     Indication: DEPRESSION
     Dosage: QD
     Dates: start: 20100117, end: 20100418

REACTIONS (7)
  - FALL [None]
  - VOMITING [None]
  - ASPIRATION [None]
  - COMA [None]
  - HEAD INJURY [None]
  - CONVULSION [None]
  - PELVIC FRACTURE [None]
